FAERS Safety Report 7031981-8 (Version None)
Quarter: 2010Q4

REPORT INFORMATION
  Report Type: 
  Country: None (occurrence: None)
  Receive Date: 20101007
  Receipt Date: 20100929
  Transmission Date: 20110411
  Serious: Yes (Other)
  Sender: FDA-Public Use
  Company Number: JP-BAYER-201013933BYL

PATIENT
  Age: 71 Year
  Sex: Male
  Weight: 57 kg

DRUGS (15)
  1. NEXAVAR [Suspect]
     Indication: HEPATIC NEOPLASM MALIGNANT
     Dosage: TOTAL DAILY DOSE: 400 MG  UNIT DOSE: 200 MG
     Route: 048
     Dates: start: 20100721, end: 20100730
  2. GLAKAY [Concomitant]
     Dosage: BEFORE NEXAVAR ADMINISTRATION
     Route: 048
     Dates: end: 20100807
  3. MAGMITT [Concomitant]
     Dosage: BEFORE NEXAVAR ADMINISTRATION
     Route: 048
  4. LENDORMIN D [Concomitant]
     Route: 048
     Dates: start: 20100722, end: 20100809
  5. FLIVAS OD [Concomitant]
     Route: 048
     Dates: start: 20100727, end: 20100810
  6. AMITRIPTYLINE HCL [Concomitant]
     Route: 048
     Dates: start: 20100727, end: 20100810
  7. GASTER D [Concomitant]
     Dosage: BEFORE NEXAVAR ADMINISTRATION
     Route: 048
  8. ALLELOCK [Concomitant]
     Dosage: BEFORE NEXAVAR ADMINISTRATION
     Route: 048
  9. URSO 250 [Concomitant]
     Dosage: BEFORE NEXAVAR ADMINISTRATION
     Route: 048
  10. CHOLEBRINE [Concomitant]
     Dosage: UNIT DOSE: 1500 MG
     Route: 048
  11. MEVALOTIN [Concomitant]
     Dosage: BEFORE NEXAVAR ADMINISTRATION
     Route: 048
  12. LIVACT [Concomitant]
     Dosage: UNIT DOSE: 4.15 G
     Route: 048
  13. GASMET D [Concomitant]
     Route: 048
  14. GOKUMISIN [Concomitant]
     Route: 048
  15. MEVARICH [Concomitant]
     Route: 048

REACTIONS (2)
  - HEPATIC FUNCTION ABNORMAL [None]
  - HYPERTENSION [None]
